FAERS Safety Report 8020720-X (Version None)
Quarter: 2012Q1

REPORT INFORMATION
  Report Type: 
  Country: None (occurrence: None)
  Receive Date: 20120104
  Receipt Date: 20111230
  Transmission Date: 20120608
  Serious: Yes (Hospitalization)
  Sender: FDA-Public Use
  Company Number: BR-BRISTOL-MYERS SQUIBB COMPANY-16205528

PATIENT
  Age: 29 Year
  Sex: Male

DRUGS (2)
  1. IPILIMUMAB [Suspect]
     Indication: MALIGNANT MELANOMA
     Route: 042
     Dates: start: 20111013
  2. METHADONE HCL [Concomitant]
     Dates: start: 20110801

REACTIONS (1)
  - THROMBOCYTOPENIA [None]
